FAERS Safety Report 8212708-0 (Version None)
Quarter: 2012Q1

REPORT INFORMATION
  Report Type: 
  Country: None (occurrence: None)
  Receive Date: 20120315
  Receipt Date: 20120312
  Transmission Date: 20120608
  Serious: No
  Sender: FDA-Public Use
  Company Number: US-PFIZER INC-2012065686

PATIENT

DRUGS (1)
  1. PRISTIQ [Suspect]
     Dosage: UNK

REACTIONS (3)
  - WRONG TECHNIQUE IN DRUG USAGE PROCESS [None]
  - ASTHENIA [None]
  - ABDOMINAL DISCOMFORT [None]
